FAERS Safety Report 14319548 (Version 1)
Quarter: 2017Q4

REPORT INFORMATION
  Report Type: Spontaneous
  Country: US (occurrence: US)
  Receive Date: 20171222
  Receipt Date: 20171222
  Transmission Date: 20180321
  Serious: Yes (Other)
  Sender: FDA-Public Use
  Company Number: US-TEVA-2017-US-836132

PATIENT
  Sex: Male

DRUGS (3)
  1. APTIOM [Suspect]
     Active Substance: ESLICARBAZEPINE ACETATE
     Dosage: 1000 MILLIGRAM DAILY;
  2. DIVALPROEX [Suspect]
     Active Substance: DIVALPROEX SODIUM
     Route: 065
  3. FELBATOL [Suspect]
     Active Substance: FELBAMATE
     Route: 065

REACTIONS (1)
  - Seizure [Not Recovered/Not Resolved]
